FAERS Safety Report 5537094-6 (Version None)
Quarter: 2007Q4

REPORT INFORMATION
  Report Type: 
  Country: None (occurrence: None)
  Receive Date: 20071207
  Receipt Date: 20071126
  Transmission Date: 20080405
  Serious: Yes (Death, Hospitalization)
  Sender: FDA-Public Use
  Company Number: TW-BAYER-200717416GPV

PATIENT
  Age: 44 Year
  Sex: Male
  Weight: 57 kg

DRUGS (2)
  1. SORAFENIB [Suspect]
     Indication: HEPATIC CANCER METASTATIC
     Dosage: TOTAL DAILY DOSE: 400 MG  UNIT DOSE: 200 MG
     Route: 048
     Dates: start: 20070824, end: 20070909
  2. TEGAFUR-URACIL [Suspect]
     Indication: HEPATIC CANCER METASTATIC
     Dosage: TOTAL DAILY DOSE: 896 MG
     Route: 048
     Dates: start: 20070824, end: 20070909

REACTIONS (4)
  - HEPATITIS FULMINANT [None]
  - HEPATOTOXICITY [None]
  - MALAISE [None]
  - VOMITING [None]
